FAERS Safety Report 6138356-4 (Version None)
Quarter: 2009Q1

REPORT INFORMATION
  Report Type: 
  Country: None (occurrence: None)
  Receive Date: 20090331
  Receipt Date: 20090324
  Transmission Date: 20090719
  Serious: Yes (Hospitalization, Other)
  Sender: FDA-Public Use
  Company Number: DE-AVENTIS-200910357US

PATIENT
  Sex: Female
  Weight: 70 kg

DRUGS (9)
  1. DIABETA [Suspect]
     Indication: DIABETES MELLITUS
     Dosage: DOSE: UNK
  2. GLUCOPHAGE [Suspect]
     Indication: DIABETES MELLITUS
     Dates: start: 20081221
  3. GLUCOPHAGE [Suspect]
     Dates: end: 20081220
  4. MICRONASE [Suspect]
     Indication: DIABETES MELLITUS
     Dosage: DOSE: 2 OF THE 5 MG TABS MORNING AND NIGHT
     Dates: end: 20081223
  5. AVANDIA [Suspect]
     Indication: DIABETES MELLITUS
     Dosage: DOSE: UNK
  6. GLIPIZIDE [Suspect]
     Indication: TYPE 2 DIABETES MELLITUS
     Dosage: DOSE: 2 OF THE 5 MG TABS MORNING AND AT NIGHT
     Dates: start: 20081224, end: 20090226
  7. FOLIC ACID [Concomitant]
     Dosage: DOSE: 1 IN 2 D
  8. ASPIRIN [Concomitant]
  9. POTASSIUM CHLORIDE [Concomitant]
     Dosage: DOSE: UNK

REACTIONS (12)
  - ASTHENIA [None]
  - BLOOD GLUCOSE INCREASED [None]
  - BODY HEIGHT DECREASED [None]
  - CARDIAC DISORDER [None]
  - DIARRHOEA [None]
  - DIZZINESS [None]
  - FLATULENCE [None]
  - GLYCOSYLATED HAEMOGLOBIN INCREASED [None]
  - HYPOGLYCAEMIA [None]
  - PNEUMONIA [None]
  - TREMOR [None]
  - VISUAL IMPAIRMENT [None]
